FAERS Safety Report 19809789 (Version 1)
Quarter: 2021Q3

REPORT INFORMATION
  Report Type: Spontaneous
  Country: US (occurrence: US)
  Receive Date: 20210908
  Receipt Date: 20210908
  Transmission Date: 20211014
  Serious: No
  Sender: FDA-Public Use
  Company Number: US-ROCHE-2699926

PATIENT
  Sex: Male

DRUGS (2)
  1. ALECENSA [Suspect]
     Active Substance: ALECTINIB HYDROCHLORIDE
     Indication: LUNG NEOPLASM MALIGNANT
     Route: 048
     Dates: start: 20200901
  2. ALECENSA [Suspect]
     Active Substance: ALECTINIB HYDROCHLORIDE
     Indication: AGRANULOCYTOSIS

REACTIONS (10)
  - Hypoaesthesia [Unknown]
  - Myalgia [Unknown]
  - Neuropathy peripheral [Unknown]
  - Joint swelling [Unknown]
  - Vision blurred [Unknown]
  - Muscle swelling [Unknown]
  - Visual impairment [Unknown]
  - Fatigue [Unknown]
  - Arthralgia [Unknown]
  - Constipation [Unknown]
